FAERS Safety Report 6132411-0 (Version None)
Quarter: 2009Q1

REPORT INFORMATION
  Report Type: 
  Country: None (occurrence: None)
  Receive Date: 20090324
  Receipt Date: 20090226
  Transmission Date: 20090719
  Serious: Yes (Hospitalization)
  Sender: FDA-Public Use
  Company Number: WAES 0903USA00468

PATIENT
  Age: 68 Year
  Sex: Female

DRUGS (6)
  1. PEPCID RPD [Suspect]
     Dosage: 20 MG/DAILY PO
     Route: 048
     Dates: end: 20081109
  2. CELECOXIB [Suspect]
     Indication: RHEUMATOID ARTHRITIS
     Dosage: 200 MG/BID PO
     Route: 048
     Dates: start: 20080828, end: 20081109
  3. PREDNISOLONE [Suspect]
     Dosage: PO 5MG/DAILY
     Route: 048
  4. CONIEL(BENIDIPINE HYDROCHLORIDE) [Suspect]
     Dosage: PO 4 MG/DAILY
     Route: 048
  5. CALCIUM ASPARTATE [Suspect]
     Dosage: 800 MG/SAILY PO
     Route: 048
     Dates: start: 20070619, end: 20081109
  6. RHEUMATREX [Suspect]
     Dosage: 6 MG/WKY PO
     Route: 048
     Dates: start: 20081029, end: 20081109

REACTIONS (1)
  - JAUNDICE CHOLESTATIC [None]
